FAERS Safety Report 23239933 (Version 2)
Quarter: 2024Q1

REPORT INFORMATION
  Report Type: Spontaneous
  Country: US (occurrence: US)
  Receive Date: 20231129
  Receipt Date: 20240110
  Transmission Date: 20240410
  Serious: No
  Sender: FDA-Public Use
  Company Number: US-BEH-2023165645

PATIENT
  Age: 59 Year
  Sex: Female

DRUGS (3)
  1. HIZENTRA [Suspect]
     Active Substance: HUMAN IMMUNOGLOBULIN G
     Indication: Humoral immune defect
     Dosage: UNK, QW
     Route: 058
  2. HIZENTRA [Suspect]
     Active Substance: HUMAN IMMUNOGLOBULIN G
     Indication: Hypogammaglobulinaemia
     Dosage: UNK
     Route: 058
     Dates: start: 20231111
  3. HIZENTRA [Suspect]
     Active Substance: HUMAN IMMUNOGLOBULIN G
     Dosage: 10 GRAM
     Route: 058
     Dates: start: 201907

REACTIONS (25)
  - Infusion site pain [Recovered/Resolved]
  - Infusion site pain [Recovered/Resolved]
  - Headache [Recovered/Resolved]
  - Back pain [Recovered/Resolved]
  - Eye pruritus [Recovered/Resolved]
  - Infusion site pruritus [Recovered/Resolved]
  - No adverse event [Unknown]
  - Incorrect dose administered [Unknown]
  - Lacrimation increased [Unknown]
  - Infusion site erythema [Unknown]
  - Malabsorption from injection site [Recovered/Resolved]
  - Infusion site urticaria [Recovered/Resolved]
  - Injection site mass [Recovered/Resolved]
  - Headache [Unknown]
  - Arthralgia [Unknown]
  - Infusion site pain [Unknown]
  - Infusion site pain [Unknown]
  - Headache [Unknown]
  - Back pain [Unknown]
  - Eye pruritus [Unknown]
  - Infusion site pruritus [Unknown]
  - Infusion site erythema [Unknown]
  - Malabsorption from injection site [Unknown]
  - Infusion site urticaria [Unknown]
  - Injection site mass [Unknown]

NARRATIVE: CASE EVENT DATE: 20231111
